FAERS Safety Report 7478782-4 (Version None)
Quarter: 2011Q2

REPORT INFORMATION
  Report Type: 
  Country: None (occurrence: None)
  Receive Date: 20110513
  Receipt Date: 20110422
  Transmission Date: 20111010
  Serious: No
  Sender: FDA-Public Use
  Company Number: US-B.I. PHARMACEUTICALS,INC./RIDGEFIELD-2011-BP-06577BP

PATIENT
  Age: 73 Year
  Sex: Female

DRUGS (9)
  1. NIACIN [Concomitant]
     Indication: BLOOD CHOLESTEROL INCREASED
  2. SPIRIVA [Suspect]
     Indication: ASTHMA
  3. BONIVA [Concomitant]
     Indication: OSTEOARTHRITIS
  4. AMLODIPINE BESYLATE [Concomitant]
     Indication: HYPERTENSION
  5. NASONEX [Concomitant]
     Indication: ASTHMA
  6. MULTIPLE VITAMINS [Concomitant]
     Indication: MYOCARDIAL INFARCTION
  7. SPIRIVA [Suspect]
     Indication: CHRONIC OBSTRUCTIVE PULMONARY DISEASE
     Dosage: 18 MCG
     Route: 055
     Dates: start: 20060101
  8. OMEPRAZOLE [Concomitant]
     Indication: HERNIA
  9. PROAIR HFA [Concomitant]
     Indication: ASTHMA

REACTIONS (3)
  - SLEEP APNOEA SYNDROME [None]
  - HIATUS HERNIA [None]
  - ASTHMA [None]
